FAERS Safety Report 20557238 (Version 1)
Quarter: 2022Q1

REPORT INFORMATION
  Report Type: Spontaneous
  Country: RU (occurrence: RU)
  Receive Date: 20220307
  Receipt Date: 20220307
  Transmission Date: 20220423
  Serious: Yes (Other)
  Sender: FDA-Public Use
  Company Number: RU-ABBOTT-2022A-1346320

PATIENT
  Age: 18 Year
  Sex: Female

DRUGS (1)
  1. CREON [Suspect]
     Active Substance: PANCRELIPASE AMYLASE\PANCRELIPASE LIPASE\PANCRELIPASE PROTEASE
     Indication: Pancreatitis
     Dosage: CREON 10000?UNIT DOSE: 1 CAPSULE, DAILY DOSE: 2 CAPSULES
     Route: 048

REACTIONS (1)
  - Erythema [Recovered/Resolved]
